FAERS Safety Report 4342558-7 (Version None)
Quarter: 2004Q1

REPORT INFORMATION
  Report Type: 
  Country: None (occurrence: None)
  Receive Date: 20040213
  Receipt Date: 20031215
  Transmission Date: 20041129
  Serious: Yes (Hospitalization)
  Sender: FDA-Public Use
  Company Number: 354203

PATIENT
  Age: 47 Year
  Sex: Female
  Weight: 81.6 kg

DRUGS (2)
  1. PEGASYS [Suspect]
     Indication: HEPATITIS C
     Dosage: 180 MCG 1 PER WEEK SUBCUTANEOUS
     Route: 058
     Dates: start: 20030707, end: 20031115
  2. COPEGUS [Suspect]
     Indication: HEPATITIS C
     Dosage: 4 DOSE FORM DAILY ORAL
     Route: 048
     Dates: start: 20030707, end: 20031115

REACTIONS (11)
  - ARTHRALGIA [None]
  - BACK PAIN [None]
  - BONE PAIN [None]
  - CYSTITIS [None]
  - DIARRHOEA HAEMORRHAGIC [None]
  - HEART RATE INCREASED [None]
  - HYPERTHYROIDISM [None]
  - KIDNEY INFECTION [None]
  - SINUSITIS [None]
  - WEIGHT DECREASED [None]
  - WHITE BLOOD CELL COUNT DECREASED [None]
